FAERS Safety Report 8888619 (Version 3)
Quarter: 2013Q3

REPORT INFORMATION
  Report Type: Spontaneous
  Country: US (occurrence: US)
  Receive Date: 20121106
  Receipt Date: 20130923
  Transmission Date: 20140515
  Serious: Yes (Hospitalization, Other)
  Sender: FDA-Public Use
  Company Number: US-009507513-1203USA00207

PATIENT
  Sex: Female

DRUGS (2)
  1. FOSAMAX [Suspect]
     Indication: OSTEOPOROSIS
     Dosage: 70 MG, QW
     Route: 048
     Dates: start: 19990101, end: 20050101
  2. FOSAMAX [Suspect]
     Indication: OSTEOPOROSIS

REACTIONS (33)
  - Femur fracture [Unknown]
  - Vertebroplasty [Unknown]
  - Spinal fracture [Unknown]
  - Arthroscopic surgery [Unknown]
  - Spinal fracture [Unknown]
  - Foot fracture [Unknown]
  - Back pain [Not Recovered/Not Resolved]
  - Cerebrovascular accident [Unknown]
  - Fall [Unknown]
  - Cardiovascular disorder [Unknown]
  - Colitis [Unknown]
  - Drug hypersensitivity [Unknown]
  - Dizziness [Unknown]
  - Blood count abnormal [Unknown]
  - Presyncope [Unknown]
  - Ventricular extrasystoles [Unknown]
  - Tricuspid valve incompetence [Unknown]
  - Orthostatic hypotension [Unknown]
  - Ventricular tachycardia [Unknown]
  - Multiple fractures [Unknown]
  - Dementia [Not Recovered/Not Resolved]
  - Hypertension [Unknown]
  - Glaucoma [Unknown]
  - Rotator cuff repair [Unknown]
  - Kyphosis [Unknown]
  - Osteoarthritis [Unknown]
  - Bacteriuria [Unknown]
  - Depression [Unknown]
  - Hyponatraemia [Unknown]
  - Suicidal ideation [Unknown]
  - Psychotic behaviour [Unknown]
  - Rotator cuff syndrome [Unknown]
  - Mitral valve prolapse [Unknown]
